FAERS Safety Report 17099003 (Version 1)
Quarter: 2019Q4

REPORT INFORMATION
  Report Type: Spontaneous
  Country: DE (occurrence: DE)
  Receive Date: 20191202
  Receipt Date: 20191202
  Transmission Date: 20200122
  Serious: Yes (Hospitalization)
  Sender: FDA-Public Use
  Company Number: NVSC2019DE051796

PATIENT
  Age: 89 Year
  Sex: Female

DRUGS (13)
  1. MONURIL [Concomitant]
     Active Substance: FOSFOMYCIN TROMETHAMINE
     Indication: ESCHERICHIA INFECTION
     Dosage: 3 G, SINGLE DOSE
     Route: 065
  2. CITALOPRAM [Suspect]
     Active Substance: CITALOPRAM HYDROBROMIDE
     Indication: DEPRESSION
     Dosage: UNK
     Route: 065
  3. PETHIDINE [Interacting]
     Active Substance: MEPERIDINE
     Indication: PAIN
     Dosage: GIVEN AT A DOSE OF 400-800 MG
     Route: 065
  4. CEFEPIME [Concomitant]
     Active Substance: CEFEPIME HYDROCHLORIDE
     Indication: PRODUCT USED FOR UNKNOWN INDICATION
     Dosage: GIVEN 2 TIMES AND THE DOSE WAS ADJUSTED
     Route: 042
  5. QUETIAPINE. [Suspect]
     Active Substance: QUETIAPINE
     Indication: DEPRESSION
     Dosage: UNK
     Route: 065
  6. DAFALGAN [Concomitant]
     Active Substance: ACETAMINOPHEN
     Indication: PAIN
     Dosage: UNK
     Route: 042
  7. DURAGESIC [Concomitant]
     Active Substance: FENTANYL
     Indication: PAIN
     Dosage: 12.5 UG, GIVEN AT A LOW DOSE
     Route: 065
  8. MYDOCALM (TOLPERISONE HYDROCHLORIDE) [Interacting]
     Active Substance: TOLPERISONE HYDROCHLORIDE
     Indication: PAIN
     Dosage: 450 MG
     Route: 048
  9. LORAZEPAMUM [Suspect]
     Active Substance: LORAZEPAM
     Indication: DEPRESSION
     Dosage: UNK
     Route: 065
  10. DIAZEPAM. [Concomitant]
     Active Substance: DIAZEPAM
     Indication: PRODUCT USED FOR UNKNOWN INDICATION
     Dosage: 5 MG, SEVERAL TIMES DAILY AS NEEDED
     Route: 054
  11. MIRTAZAPINE. [Interacting]
     Active Substance: MIRTAZAPINE
     Indication: DEPRESSION
     Dosage: UNK
     Route: 065
  12. NOVALGIN (METAMIZOLE SODIUM) [Suspect]
     Active Substance: METAMIZOLE SODIUM
     Indication: PAIN
     Dosage: 2.5-5 G; AT 2-4 ML/HOUR
     Route: 042
  13. OXYCONTIN [Interacting]
     Active Substance: OXYCODONE HYDROCHLORIDE
     Indication: PAIN
     Dosage: UNK
     Route: 065

REACTIONS (7)
  - Delirium [Recovering/Resolving]
  - Drug interaction [Recovering/Resolving]
  - Diarrhoea [Recovering/Resolving]
  - Hypertension [Recovering/Resolving]
  - Respiratory alkalosis [Recovering/Resolving]
  - Hallucination [Recovering/Resolving]
  - Serotonin syndrome [Recovering/Resolving]

NARRATIVE: CASE EVENT DATE: 2015
